FAERS Safety Report 21734007 (Version 1)
Quarter: 2022Q4

REPORT INFORMATION
  Report Type: Spontaneous
  Country: US (occurrence: US)
  Receive Date: 20221215
  Receipt Date: 20221215
  Transmission Date: 20230112
  Serious: No
  Sender: FDA-Public Use
  Company Number: US-BIOGEN-2022BI01174716

PATIENT
  Age: 47 Year
  Sex: Female

DRUGS (2)
  1. VUMERITY [Suspect]
     Active Substance: DIROXIMEL FUMARATE
     Indication: Multiple sclerosis
     Dosage: 1 CAPSULES TWICE DAILY
     Route: 050
     Dates: start: 20221106
  2. VUMERITY [Suspect]
     Active Substance: DIROXIMEL FUMARATE
     Dosage: 2 CAPSULES TWICE DAILY
     Route: 050
     Dates: start: 20221113

REACTIONS (4)
  - Rash erythematous [Recovered/Resolved]
  - Diarrhoea [Unknown]
  - Rhinorrhoea [Unknown]
  - Flushing [Unknown]

NARRATIVE: CASE EVENT DATE: 20221101
